FAERS Safety Report 15926991 (Version 1)
Quarter: 2019Q1

REPORT INFORMATION
  Report Type: Spontaneous
  Country: AU (occurrence: AU)
  Receive Date: 20190206
  Receipt Date: 20190206
  Transmission Date: 20190417
  Serious: Yes (Other)
  Sender: FDA-Public Use
  Company Number: AU-PFIZER INC-2019049619

PATIENT
  Sex: Female

DRUGS (1)
  1. NEURONTIN [Suspect]
     Active Substance: GABAPENTIN
     Indication: MENOPAUSAL SYMPTOMS
     Dosage: 300 MG, UNK
     Dates: start: 2012

REACTIONS (9)
  - Withdrawal syndrome [Unknown]
  - Hyperhidrosis [Unknown]
  - Memory impairment [Unknown]
  - Upper respiratory tract infection [Unknown]
  - Visual impairment [Unknown]
  - Dyspnoea [Unknown]
  - Product use in unapproved indication [Unknown]
  - Pleural effusion [Unknown]
  - Cognitive disorder [Unknown]

NARRATIVE: CASE EVENT DATE: 2012
